FAERS Safety Report 18403541 (Version 1)
Quarter: 2020Q4

REPORT INFORMATION
  Report Type: Spontaneous
  Country: US (occurrence: US)
  Receive Date: 20201020
  Receipt Date: 20201020
  Transmission Date: 20210114
  Serious: Yes (Other)
  Sender: FDA-Public Use
  Company Number: US-REGENERON PHARMACEUTICALS, INC.-2020-82031

PATIENT

DRUGS (1)
  1. PRALUENT [Suspect]
     Active Substance: ALIROCUMAB
     Indication: PRODUCT USED FOR UNKNOWN INDICATION
     Dosage: UNK

REACTIONS (6)
  - Musculoskeletal disorder [Unknown]
  - Haemorrhagic diathesis [Not Recovered/Not Resolved]
  - Bronchitis [Not Recovered/Not Resolved]
  - Erythema [Unknown]
  - Rhinitis allergic [Unknown]
  - Weight increased [Not Recovered/Not Resolved]
